FAERS Safety Report 9322598 (Version 1)
Quarter: 2013Q2

REPORT INFORMATION
  Report Type: Spontaneous
  Country: US (occurrence: US)
  Receive Date: 20130531
  Receipt Date: 20130531
  Transmission Date: 20140414
  Serious: No
  Sender: FDA-Public Use
  Company Number: US-ASTRAZENECA-2013SE36701

PATIENT
  Age: 57 Year
  Sex: Female

DRUGS (7)
  1. ARIMIDEX [Suspect]
     Indication: BREAST CANCER STAGE II
     Route: 048
     Dates: start: 2011, end: 2011
  2. ARIMIDEX [Suspect]
     Indication: BREAST CANCER STAGE II
     Dosage: 1 MG DAILY GENERIC
     Route: 048
     Dates: start: 2011, end: 20130514
  3. TAMOXIFEN [Concomitant]
  4. BLOOD PRESSURE MEDICATION [Concomitant]
  5. SYNTHROID [Concomitant]
  6. ZOLOFT [Concomitant]
  7. XANAX [Concomitant]

REACTIONS (13)
  - Pharyngeal oedema [Not Recovered/Not Resolved]
  - Weight increased [Not Recovered/Not Resolved]
  - Ear discomfort [Not Recovered/Not Resolved]
  - Dysgeusia [Not Recovered/Not Resolved]
  - Crying [Recovering/Resolving]
  - Chills [Recovered/Resolved]
  - Activities of daily living impaired [Unknown]
  - Bone pain [Not Recovered/Not Resolved]
  - Headache [Not Recovered/Not Resolved]
  - Hot flush [Unknown]
  - Alopecia [Not Recovered/Not Resolved]
  - Hyperhidrosis [Recovered/Resolved]
  - Arthralgia [Recovering/Resolving]
